FAERS Safety Report 26181740 (Version 1)
Quarter: 2025Q4

REPORT INFORMATION
  Report Type: Spontaneous
  Country: EU (occurrence: EU)
  Receive Date: 20251221
  Receipt Date: 20251221
  Transmission Date: 20260118
  Serious: Yes (Disabling, Other)
  Sender: Methapharma
  Company Number: EU-AFSSAPS-GR2024001367

PATIENT
  Age: 56 Year
  Sex: Male

DRUGS (1)
  1. ASCLERA [Suspect]
     Active Substance: POLIDOCANOL
     Indication: Varicose vein
     Dosage: 1.6 ML LIQUID FOR 6 ML FOAM

REACTIONS (3)
  - Ischaemic stroke [Recovered/Resolved with Sequelae]
  - Deep vein thrombosis [Recovering/Resolving]
  - Cerebral gas embolism [Recovering/Resolving]

NARRATIVE: CASE EVENT DATE: 20241019
